FAERS Safety Report 13653715 (Version 1)
Quarter: 2017Q2

REPORT INFORMATION
  Report Type: Spontaneous
  Country: FR (occurrence: FR)
  Receive Date: 20170614
  Receipt Date: 20170614
  Transmission Date: 20170830
  Serious: Yes (Other)
  Sender: FDA-Public Use
  Company Number: FR-BAYER-2017-110480

PATIENT
  Age: 37 Year
  Sex: Female

DRUGS (1)
  1. MIRENA [Suspect]
     Active Substance: LEVONORGESTREL
     Indication: CHEMICAL CONTRACEPTION
     Dosage: 20 MCG/24HR, CONT
     Route: 015
     Dates: start: 20090404

REACTIONS (12)
  - Breast pain [Unknown]
  - Visual impairment [Unknown]
  - Memory impairment [Unknown]
  - Acne [Unknown]
  - Headache [Unknown]
  - Abdominal pain [Unknown]
  - Depression [Unknown]
  - Weight increased [Unknown]
  - Vaginal discharge [Unknown]
  - Asthenia [Unknown]
  - Aggression [Unknown]
  - Sleep disorder [Unknown]
